FAERS Safety Report 20680844 (Version 3)
Quarter: 2023Q1

REPORT INFORMATION
  Report Type: Spontaneous
  Country: CA (occurrence: CA)
  Receive Date: 20220406
  Receipt Date: 20230118
  Transmission Date: 20230417
  Serious: Yes (Death)
  Sender: FDA-Public Use
  Company Number: CA-NOVARTISPH-NVSC2022CA078322

PATIENT
  Sex: Male

DRUGS (3)
  1. ATRIANCE [Suspect]
     Active Substance: NELARABINE
     Indication: T-cell type acute leukaemia
     Dosage: UNK, CYCLIC
     Route: 065
     Dates: start: 20220708
  2. ATRIANCE [Suspect]
     Active Substance: NELARABINE
     Dosage: UNK, CYCLIC
     Route: 065
     Dates: start: 20220710
  3. ATRIANCE [Suspect]
     Active Substance: NELARABINE
     Dosage: UNK, CYCLIC
     Route: 065
     Dates: start: 20220712

REACTIONS (1)
  - Death [Fatal]
